FAERS Safety Report 25135779 (Version 5)
Quarter: 2025Q2

REPORT INFORMATION
  Report Type: Report from Study
  Country: CA (occurrence: CA)
  Receive Date: 20250328
  Receipt Date: 20250520
  Transmission Date: 20250717
  Serious: Yes (Other)
  Sender: JOHNSON AND JOHNSON
  Company Number: CA-JNJFOC-20250350194

PATIENT
  Age: 15 Year
  Sex: Male
  Weight: 78 kg

DRUGS (7)
  1. REMICADE [Suspect]
     Active Substance: INFLIXIMAB
     Indication: Crohn^s disease
     Dosage: EXP: MA-2027
     Route: 041
     Dates: start: 20241219
  2. REMICADE [Suspect]
     Active Substance: INFLIXIMAB
     Route: 041
     Dates: start: 20240815
  3. REMICADE [Suspect]
     Active Substance: INFLIXIMAB
     Route: 041
  4. REMICADE [Suspect]
     Active Substance: INFLIXIMAB
     Route: 041
  5. REMICADE [Suspect]
     Active Substance: INFLIXIMAB
     Route: 041
  6. IRON [Concomitant]
     Active Substance: IRON
     Indication: Product used for unknown indication
  7. RETINOL [Concomitant]
     Active Substance: RETINOL
     Indication: Product used for unknown indication

REACTIONS (7)
  - Crohn^s disease [Unknown]
  - Drug level decreased [Unknown]
  - Acne [Recovering/Resolving]
  - Skin discolouration [Recovering/Resolving]
  - Hypersomnia [Recovering/Resolving]
  - Heavy metal abnormal [Unknown]
  - Infection parasitic [Unknown]

NARRATIVE: CASE EVENT DATE: 20250309
